FAERS Safety Report 16507376 (Version 1)
Quarter: 2019Q3

REPORT INFORMATION
  Report Type: Spontaneous
  Country: US (occurrence: US)
  Receive Date: 20190521
  Receipt Date: 20190521
  Transmission Date: 20191004
  Serious: Yes (Hospitalization)
  Sender: FDA-Public Use
  Company Number: None

PATIENT
  Age: 17 Year
  Sex: Male

DRUGS (6)
  1. PULMOZYME [Concomitant]
     Active Substance: DORNASE ALFA
  2. AQUADEK [Concomitant]
  3. ZENPREP [Concomitant]
  4. MIRTAZAPINE. [Concomitant]
     Active Substance: MIRTAZAPINE
  5. ALBUTERNOL [Concomitant]
  6. SODIUM CHLORIDE 3% [Suspect]
     Active Substance: SODIUM CHLORIDE
     Indication: CYSTIC FIBROSIS
     Route: 055
     Dates: start: 20181210

REACTIONS (1)
  - Infective pulmonary exacerbation of cystic fibrosis [None]

NARRATIVE: CASE EVENT DATE: 20190520
